FAERS Safety Report 9291676 (Version 2)
Quarter: 2013Q2

REPORT INFORMATION
  Report Type: Spontaneous
  Country: SE (occurrence: SE)
  Receive Date: 20130515
  Receipt Date: 20130604
  Transmission Date: 20140414
  Serious: Yes (Other)
  Sender: FDA-Public Use
  Company Number: SE-BRISTOL-MYERS SQUIBB COMPANY-18783852

PATIENT
  Age: 31 Year
  Sex: Female

DRUGS (3)
  1. ORENCIA FOR INJ [Suspect]
     Indication: SJOGREN^S SYNDROME
     Dosage: STOP DATE:09APR2013?TREAT DUR:2.5MONTHS
     Route: 042
     Dates: start: 20130128, end: 20130409
  2. PREDNISOLONE [Concomitant]
  3. ORENCIA FOR INJ [Suspect]
     Indication: RHEUMATOID ARTHRITIS
     Dosage: STOP DATE:09APR2013?TREAT DUR:2.5MONTHS
     Route: 042
     Dates: start: 20130128, end: 20130409

REACTIONS (2)
  - Abortion induced [Unknown]
  - Pregnancy [Unknown]
